FAERS Safety Report 5133615-6 (Version None)
Quarter: 2006Q4

REPORT INFORMATION
  Report Type: 
  Country: None (occurrence: None)
  Receive Date: 20061024
  Receipt Date: 20060329
  Transmission Date: 20070319
  Serious: No
  Sender: FDA-Public Use
  Company Number: US-AMGEN-US174344

PATIENT
  Age: 62 Year
  Sex: Male

DRUGS (6)
  1. SENSIPAR [Suspect]
     Indication: HYPERPARATHYROIDISM SECONDARY
     Route: 065
     Dates: start: 20050401
  2. PLAVIX [Concomitant]
     Route: 065
  3. RENAGEL [Concomitant]
     Route: 065
  4. HECTORAL [Concomitant]
     Route: 010
  5. TOPROL-XL [Concomitant]
     Route: 065
  6. VITAMIN B-12 [Concomitant]
     Route: 065

REACTIONS (1)
  - GOUT [None]
